FAERS Safety Report 10015579 (Version 1)
Quarter: 2014Q1

REPORT INFORMATION
  Report Type: Report from Study
  Country: US (occurrence: US)
  Receive Date: 20140317
  Receipt Date: 20140317
  Transmission Date: 20141002
  Serious: Yes (Other)
  Sender: FDA-Public Use
  Company Number: US-ABBVIE-14P-163-1210989-00

PATIENT
  Age: 64 Year
  Sex: Male
  Weight: 93.07 kg

DRUGS (8)
  1. CREON [Suspect]
     Indication: PANCREATECTOMY
     Route: 048
     Dates: start: 201401, end: 20140225
  2. CREON [Suspect]
     Route: 048
     Dates: start: 20140226
  3. TOPROL [Concomitant]
     Indication: CARDIOMEGALY
  4. LISINOPRIL [Concomitant]
     Indication: HYPERTENSION
  5. PRILOSEC [Concomitant]
     Indication: GASTRITIS
  6. COUMADIN [Concomitant]
     Indication: PULMONARY EMBOLISM
  7. COUMADIN [Concomitant]
     Indication: DEEP VEIN THROMBOSIS
  8. XANAX [Concomitant]
     Indication: PANIC ATTACK

REACTIONS (2)
  - Device dislocation [Recovered/Resolved]
  - Nausea [Not Recovered/Not Resolved]
